FAERS Safety Report 10914541 (Version 3)
Quarter: 2015Q4

REPORT INFORMATION
  Report Type: Spontaneous
  Country: GB (occurrence: GB)
  Receive Date: 20150313
  Receipt Date: 20151009
  Transmission Date: 20160304
  Serious: Yes (Other)
  Sender: FDA-Public Use
  Company Number: GB-GLAXOSMITHKLINE-GB2015GSK032074

PATIENT
  Sex: Female

DRUGS (2)
  1. NEOTIGASON [Suspect]
     Active Substance: ACITRETIN
     Indication: PSORIASIS
     Dosage: 25 MG, UNK
     Route: 048
     Dates: start: 201403, end: 201501
  2. DIANETTE [Suspect]
     Active Substance: CYPROTERONE ACETATE\ETHINYL ESTRADIOL
     Indication: CONTRACEPTION
     Dosage: UNK
     Dates: end: 201501

REACTIONS (3)
  - Pregnancy on oral contraceptive [Unknown]
  - Exposure during pregnancy [Unknown]
  - Drug ineffective [Unknown]
